FAERS Safety Report 24433155 (Version 2)
Quarter: 2024Q4

REPORT INFORMATION
  Report Type: Spontaneous
  Country: US (occurrence: US)
  Receive Date: 20241014
  Receipt Date: 20241025
  Transmission Date: 20250115
  Serious: No
  Sender: ROCHE
  Company Number: US-ROCHE-10000103126

PATIENT
  Sex: Male
  Weight: 75.3 kg

DRUGS (2)
  1. XOLAIR PFS [Suspect]
     Active Substance: OMALIZUMAB
     Indication: Nasal polyps
     Dosage: STRENGTH: 150 MG/ML
     Route: 058
     Dates: start: 202303
  2. XOLAIR PFS [Suspect]
     Active Substance: OMALIZUMAB

REACTIONS (2)
  - Drug ineffective [Unknown]
  - No adverse event [Unknown]
